FAERS Safety Report 8470792-3 (Version None)
Quarter: 2012Q2

REPORT INFORMATION
  Report Type: 
  Country: None (occurrence: None)
  Receive Date: 20120620
  Receipt Date: 20120606
  Transmission Date: 20120825
  Serious: Yes (Other)
  Sender: FDA-Public Use
  Company Number: DSM-2012-00652

PATIENT
  Age: 69 Year
  Sex: Female

DRUGS (3)
  1. OMEPRAZOL RATIOPHARM (OMEPRAZOLE) (OMEPRAZOLE) [Concomitant]
  2. SIMVASTINA CINFA (SIMVASTATIN) (SIMVASTATIN) [Concomitant]
  3. OLMESARTAN MEDOXOMIL [Suspect]
     Indication: HYPERTENSION
     Dosage: 10 MG (1 IN 1 D), ORAL
     Route: 048
     Dates: start: 20110324, end: 20110324

REACTIONS (1)
  - CONJUNCTIVITIS [None]
